FAERS Safety Report 7419823-X (Version None)
Quarter: 2011Q2

REPORT INFORMATION
  Report Type: 
  Country: None (occurrence: None)
  Receive Date: 20110413
  Receipt Date: 20110413
  Transmission Date: 20111010
  Serious: Yes (Disabling)
  Sender: FDA-Public Use
  Company Number: None

PATIENT
  Sex: Female
  Weight: 108.8633 kg

DRUGS (1)
  1. ZOCOR [Suspect]
     Indication: CORONARY ARTERY BYPASS
     Dosage: 80MG ONCE AT NIGHT
     Dates: start: 20090625, end: 20110225

REACTIONS (7)
  - MUSCLE DISORDER [None]
  - FEELING COLD [None]
  - MUSCLE TIGHTNESS [None]
  - FATIGUE [None]
  - MYALGIA [None]
  - PARAESTHESIA [None]
  - LOW DENSITY LIPOPROTEIN INCREASED [None]
